FAERS Safety Report 4443510-3 (Version None)
Quarter: 2004Q3

REPORT INFORMATION
  Report Type: 
  Country: None (occurrence: None)
  Receive Date: 20040903
  Receipt Date: 20040903
  Transmission Date: 20050211
  Serious: Yes (Disabling, Other)
  Sender: FDA-Public Use
  Company Number: None

PATIENT
  Age: 54 Year
  Sex: Female
  Weight: 86.1834 kg

DRUGS (2)
  1. ADVAIR DISKUS 250/50 [Suspect]
     Indication: COUGH
     Dosage: 1
     Dates: start: 20010101, end: 20040902
  2. ADVAIR DISKUS 250/50 [Suspect]
     Indication: OBSTRUCTIVE AIRWAYS DISORDER
     Dosage: 1
     Dates: start: 20010101, end: 20040902

REACTIONS (3)
  - ARTHRALGIA [None]
  - BACK PAIN [None]
  - PAIN IN EXTREMITY [None]
